FAERS Safety Report 23841290 (Version 4)
Quarter: 2024Q3

REPORT INFORMATION
  Report Type: Spontaneous
  Country: US (occurrence: US)
  Receive Date: 20240510
  Receipt Date: 20240829
  Transmission Date: 20241017
  Serious: Yes (Other)
  Sender: ASTELLAS
  Company Number: US-ASTELLAS-2024US011328

PATIENT
  Age: 85 Year
  Sex: Female

DRUGS (7)
  1. IZERVAY [Suspect]
     Active Substance: AVACINCAPTAD PEGOL SODIUM
     Indication: Dry age-related macular degeneration
     Dosage: 2MG/0.1ML, ONLY 1 DOSE GIVEN (ONE INJECTION IN HER LEFT EYE (OD))
     Dates: start: 20231205, end: 20231205
  2. LOSARTAN [Concomitant]
     Active Substance: LOSARTAN\LOSARTAN POTASSIUM
     Indication: Hypertension
     Dosage: 50 MG, ONCE DAILY (STARTED 3-4 YEARS AGO)
     Route: 048
  3. ESTRADIOL [Concomitant]
     Active Substance: ESTRADIOL
     Indication: Hormone replacement therapy
     Dosage: 1 MG, ONCE DAILY (STARTED 30-35 YEARS AGO)
     Route: 048
  4. OMEPRAZOLE [Concomitant]
     Active Substance: OMEPRAZOLE
     Indication: Product used for unknown indication
     Dosage: 20 MG, ONCE DAILY (STARTED 20 YEARS AGO)
     Route: 048
  5. LEVOTHYROXINE [Concomitant]
     Active Substance: LEVOTHYROXINE\LEVOTHYROXINE SODIUM
     Indication: Hypothyroidism
     Dosage: 75 MG, ONCE DAILY (EARLY MORNING)
     Route: 048
  6. HYDROCHLOROTHIAZIDE [Concomitant]
     Active Substance: HYDROCHLOROTHIAZIDE
     Indication: Product used for unknown indication
     Dosage: 12.5 MG, ONCE DAILY (STARTED 10 YEARS AGO)
     Route: 048
  7. TIMOLOL MALEATE [Concomitant]
     Active Substance: TIMOLOL MALEATE
     Indication: Intraocular pressure test abnormal
     Dosage: 1 DROP, TWICE DAILY (1 DROP IN EACH EYE (OU), MORNING, NIGHT), STARTED 5-6 YEARS AGO
     Route: 047

REACTIONS (5)
  - Blindness [Not Recovered/Not Resolved]
  - Intraocular pressure increased [Recovered/Resolved]
  - Condition aggravated [Recovered/Resolved]
  - Vitreous floaters [Not Recovered/Not Resolved]
  - Condition aggravated [Not Recovered/Not Resolved]

NARRATIVE: CASE EVENT DATE: 20231205
